FAERS Safety Report 13999702 (Version 2)
Quarter: 2017Q4

REPORT INFORMATION
  Report Type: Spontaneous
  Country: US (occurrence: US)
  Receive Date: 20170922
  Receipt Date: 20171016
  Transmission Date: 20180321
  Serious: No
  Sender: FDA-Public Use
  Company Number: US-TEVA-807674USA

PATIENT
  Age: 62 Year
  Sex: Female
  Weight: 68.1 kg

DRUGS (1)
  1. COPAXONE [Suspect]
     Active Substance: GLATIRAMER ACETATE
     Indication: MULTIPLE SCLEROSIS

REACTIONS (3)
  - Heart rate increased [Unknown]
  - Product storage error [Unknown]
  - Flushing [Unknown]

NARRATIVE: CASE EVENT DATE: 20170913
